FAERS Safety Report 9493501 (Version 6)
Quarter: 2013Q4

REPORT INFORMATION
  Report Type: Report from Study
  Country: JP (occurrence: JP)
  Receive Date: 20130902
  Receipt Date: 20131226
  Transmission Date: 20140711
  Serious: Yes (Death, Hospitalization)
  Sender: FDA-Public Use
  Company Number: JP-PFIZER INC-2013248424

PATIENT
  Age: 44 Year
  Sex: Female
  Weight: 85.1 kg

DRUGS (16)
  1. XALKORI [Suspect]
     Indication: NON-SMALL CELL LUNG CANCER
     Dosage: 250 MG, 2X/DAY
     Route: 048
     Dates: start: 20130213, end: 20130318
  2. XALKORI [Suspect]
     Dosage: 250 MG, 1X/DAY
     Route: 048
     Dates: start: 20130319, end: 20130321
  3. XALKORI [Suspect]
     Dosage: 250 MG, 2X/DAY
     Route: 048
     Dates: start: 20130322, end: 20130328
  4. XALKORI [Suspect]
     Dosage: 200 MG, 2X/DAY
     Route: 048
     Dates: start: 20130329, end: 20130424
  5. XALKORI [Suspect]
     Dosage: 250 MG, 2X/DAY
     Route: 048
     Dates: start: 20130425, end: 20130704
  6. DOMPERIDONE [Concomitant]
     Dosage: 10 MG, 2X/DAY
     Route: 048
     Dates: start: 20130220
  7. NOVAMIN [Concomitant]
     Dosage: 5 MG, 3X/DAY
     Route: 048
     Dates: start: 20130225
  8. ISODINE GARGLE [Concomitant]
     Dosage: AS NEEDED
     Route: 049
  9. LOXONIN PAP [Concomitant]
     Dosage: 100 MG, AS NEEDED
     Route: 062
  10. SP TROCHES [Concomitant]
     Dosage: 0.25 MG, AS NEEDED
     Route: 048
  11. WARFARIN [Concomitant]
     Indication: EMBOLISM VENOUS
     Dosage: 2 MG, 1X/DAY
     Route: 048
     Dates: start: 20130219, end: 20130225
  12. WARFARIN [Concomitant]
     Dosage: 2.5 MG, 1X/DAY
     Route: 048
     Dates: start: 20130226, end: 20130301
  13. WARFARIN [Concomitant]
     Dosage: 2.75 MG, 1X/DAY
     Route: 048
     Dates: start: 20130302, end: 20130308
  14. WARFARIN [Concomitant]
     Dosage: 3.5 MG, 1X/DAY
     Route: 048
     Dates: start: 20130309, end: 20130314
  15. WARFARIN [Concomitant]
     Dosage: 4 MG, 1X/DAY
     Route: 048
     Dates: start: 20130315, end: 20130328
  16. WARFARIN [Concomitant]
     Dosage: 5 MG, 1X/DAY
     Route: 048
     Dates: start: 20130329

REACTIONS (2)
  - Pulmonary embolism [Fatal]
  - Deep vein thrombosis [Not Recovered/Not Resolved]
